FAERS Safety Report 15360950 (Version 10)
Quarter: 2020Q1

REPORT INFORMATION
  Report Type: Spontaneous
  Country: US (occurrence: US)
  Receive Date: 20180907
  Receipt Date: 20200219
  Transmission Date: 20200409
  Serious: No
  Sender: FDA-Public Use
  Company Number: US-SA-2018SA248517

PATIENT
  Age: 57 Year
  Sex: Female

DRUGS (2)
  1. KEVZARA [Suspect]
     Active Substance: SARILUMAB
     Indication: RHEUMATOID ARTHRITIS
     Dosage: 200 MG, QOW
     Route: 058
     Dates: start: 201807
  2. PREGABALIN. [Suspect]
     Active Substance: PREGABALIN
     Dosage: 100 MG

REACTIONS (14)
  - Blood test abnormal [Unknown]
  - Sinusitis [Unknown]
  - Inflammation [Not Recovered/Not Resolved]
  - Nasopharyngitis [Unknown]
  - Somnolence [Unknown]
  - Injection site pain [Unknown]
  - Injection site urticaria [Unknown]
  - Injection site swelling [Unknown]
  - Influenza [Unknown]
  - Drug withdrawal syndrome [Unknown]
  - Injection site erythema [Unknown]
  - Insomnia [Unknown]
  - Device difficult to use [Unknown]
  - Alopecia [Unknown]

NARRATIVE: CASE EVENT DATE: 2018
